FAERS Safety Report 8481504-1 (Version None)
Quarter: 2012Q3

REPORT INFORMATION
  Report Type: 
  Country: None (occurrence: None)
  Receive Date: 20120702
  Receipt Date: 20120619
  Transmission Date: 20120928
  Serious: Yes (Hospitalization)
  Sender: FDA-Public Use
  Company Number: US-JNJFOC-20120601007

PATIENT
  Sex: Male
  Weight: 93 kg

DRUGS (5)
  1. ABIRATERONE ACETATE [Suspect]
     Route: 048
     Dates: start: 20120614
  2. DUTASTERIDE [Suspect]
     Route: 048
     Dates: start: 20120525, end: 20120528
  3. PREDNISONE TAB [Suspect]
     Indication: PROSTATE CANCER METASTATIC
     Route: 048
     Dates: end: 20120529
  4. ABIRATERONE ACETATE [Suspect]
     Indication: PROSTATE CANCER METASTATIC
     Route: 048
     Dates: start: 20120329, end: 20120529
  5. DUTASTERIDE [Suspect]
     Indication: PROSTATE CANCER METASTATIC
     Route: 048
     Dates: start: 20120614

REACTIONS (3)
  - PANCREATITIS ACUTE [None]
  - ANGINA UNSTABLE [None]
  - LIPASE INCREASED [None]
